FAERS Safety Report 7906415-9 (Version None)
Quarter: 2011Q4

REPORT INFORMATION
  Report Type: 
  Country: None (occurrence: None)
  Receive Date: 20111110
  Receipt Date: 20111106
  Transmission Date: 20120403
  Serious: Yes (Other)
  Sender: FDA-Public Use
  Company Number: US-PFIZER INC-2011273329

PATIENT
  Sex: Female

DRUGS (1)
  1. REVATIO [Suspect]
     Indication: RAYNAUD'S PHENOMENON
     Dosage: 20 MG, 1X/DAY

REACTIONS (3)
  - SWELLING [None]
  - MALAISE [None]
  - SKIN ULCER [None]
